FAERS Safety Report 9475255 (Version 1)
Quarter: 2013Q3

REPORT INFORMATION
  Report Type: Spontaneous
  Country: CA (occurrence: CA)
  Receive Date: 20130825
  Receipt Date: 20130825
  Transmission Date: 20140515
  Serious: Yes (Other)
  Sender: FDA-Public Use
  Company Number: CA-PFIZER INC-2013238593

PATIENT
  Age: 64 Year
  Sex: Female

DRUGS (3)
  1. PREMARIN [Suspect]
     Indication: MENOPAUSE
  2. PROVERA [Suspect]
     Indication: MENOPAUSE
  3. PROMETRIUM [Suspect]
     Indication: MENOPAUSE

REACTIONS (1)
  - Vaginal haemorrhage [Unknown]
